FAERS Safety Report 8585145-7 (Version None)
Quarter: 2012Q3

REPORT INFORMATION
  Report Type: 
  Country: None (occurrence: None)
  Receive Date: 20120810
  Receipt Date: 20120803
  Transmission Date: 20120928
  Serious: Yes (Other)
  Sender: FDA-Public Use
  Company Number: PHHY2012CA065380

PATIENT
  Sex: Male

DRUGS (3)
  1. NOVOMETHACIN [Concomitant]
  2. MEFLOQUINE HYDROCHLORIDE [Concomitant]
     Dosage: 250 MG ONCE A WEEK
  3. SANDOSTATIN LAR [Suspect]
     Indication: THYMOMA
     Dosage: 30 MG ONCE A MONTH
     Route: 030
     Dates: start: 20120111

REACTIONS (3)
  - DYSPHAGIA [None]
  - DYSPNOEA [None]
  - LUNG INFECTION [None]
